FAERS Safety Report 6462573-7 (Version None)
Quarter: 2009Q4

REPORT INFORMATION
  Report Type: 
  Country: None (occurrence: None)
  Receive Date: 20091130
  Receipt Date: 20091123
  Transmission Date: 20100525
  Serious: Yes (Hospitalization)
  Sender: FDA-Public Use
  Company Number: DE-SANOFI-AVENTIS-D01200706928

PATIENT
  Age: 62 Year
  Sex: Female
  Weight: 50 kg

DRUGS (4)
  1. CLOPIDOGREL BISULFATE [Suspect]
     Indication: ANGINA UNSTABLE
     Route: 048
     Dates: start: 20070910, end: 20070912
  2. CLOPIDOGREL BISULFATE [Suspect]
     Route: 048
     Dates: start: 20070918, end: 20071010
  3. ASPIRIN [Concomitant]
     Indication: ANGINA UNSTABLE
     Dosage: DOSE TEXT: AT LEAST 300 MG D1; 300-325 MG FROM D2 TO D30
     Route: 048
     Dates: start: 20070910
  4. PANTOPRAZOLE [Concomitant]
     Route: 065

REACTIONS (1)
  - DIVERTICULITIS [None]
